FAERS Safety Report 4601743-7 (Version None)
Quarter: 2005Q1

REPORT INFORMATION
  Report Type: 
  Country: None (occurrence: None)
  Receive Date: 20050308
  Receipt Date: 20050218
  Transmission Date: 20050727
  Serious: Yes (Hospitalization)
  Sender: FDA-Public Use
  Company Number: US-AMGEN-US115224

PATIENT
  Sex: Male

DRUGS (13)
  1. NEUPOGEN [Suspect]
     Indication: CHEMOTHERAPY
     Dates: start: 20041101
  2. TUMS [Concomitant]
  3. PERIDEX [Concomitant]
  4. CARDURA [Concomitant]
  5. ALLEGRA [Concomitant]
  6. TEQUIN [Concomitant]
  7. K-DUR 10 [Concomitant]
  8. DETROL [Concomitant]
  9. VORICONAZOLE [Concomitant]
  10. LINEZOLID [Concomitant]
  11. TESSALON [Concomitant]
  12. ALBUTEROL [Concomitant]
  13. MAGNESIUM ASCORBATE [Concomitant]

REACTIONS (7)
  - BACTERAEMIA [None]
  - DYSPNOEA [None]
  - NAUSEA [None]
  - ODYNOPHAGIA [None]
  - PNEUMONIA FUNGAL [None]
  - SINUSITIS [None]
  - STAPHYLOCOCCAL INFECTION [None]
